FAERS Safety Report 24224277 (Version 1)
Quarter: 2024Q3

REPORT INFORMATION
  Report Type: Spontaneous
  Country: US (occurrence: None)
  Receive Date: 20240818
  Receipt Date: 20240818
  Transmission Date: 20241017
  Serious: No
  Sender: Public
  Company Number: None

PATIENT
  Age: 52 Year
  Sex: Female

DRUGS (7)
  1. BENLYSTA [Suspect]
     Active Substance: BELIMUMAB
     Indication: Systemic lupus erythematosus
     Dosage: OTHER FREQUENCY : MONTHLY;?
     Route: 042
     Dates: start: 20240716
  2. METHOTREXATE [Concomitant]
     Active Substance: METHOTREXATE
  3. plaquenil [Concomitant]
  4. LEVOTHYROXINE [Concomitant]
  5. ZYRTEC [Concomitant]
     Active Substance: CETIRIZINE HYDROCHLORIDE
  6. GABAPENTIN [Concomitant]
  7. aspirin [Concomitant]

REACTIONS (2)
  - Dizziness [None]
  - Headache [None]

NARRATIVE: CASE EVENT DATE: 20240814
